FAERS Safety Report 10659474 (Version 2)
Quarter: 2015Q1

REPORT INFORMATION
  Report Type: Spontaneous
  Country: BR (occurrence: BR)
  Receive Date: 20141217
  Receipt Date: 20150116
  Transmission Date: 20150720
  Serious: Yes (Other)
  Sender: FDA-Public Use
  Company Number: PHHY2014BR164781

PATIENT
  Age: 87 Year
  Sex: Female
  Weight: 42 kg

DRUGS (14)
  1. NEOTIAPIM [Concomitant]
     Active Substance: QUETIAPINE
     Indication: INSOMNIA
     Dosage: 1 DF (TABLET), QD
     Route: 048
  2. ALOIS [Concomitant]
     Active Substance: MEMANTINE
     Indication: DEMENTIA ALZHEIMER^S TYPE
     Dosage: UNK
     Route: 048
  3. DEANOL [Concomitant]
     Active Substance: DEANOL
     Indication: DEPRESSION
     Route: 065
  4. EXELON PATCH [Suspect]
     Active Substance: RIVASTIGMINE
     Indication: DEMENTIA ALZHEIMER^S TYPE
     Dosage: 4.6 MG (9MG/PATCH 5CM2), QD
     Route: 062
     Dates: start: 20140319, end: 20140728
  5. EXELON PATCH [Suspect]
     Active Substance: RIVASTIGMINE
     Dosage: EXELON PATCH 5 ONE DAY AND EXELON PATCH 10 THE OTHER DAY
     Route: 062
     Dates: start: 20141212, end: 20141215
  6. EXELON PATCH [Suspect]
     Active Substance: RIVASTIGMINE
     Dosage: 4.6 MG (9MG/PATCH 5CM2), QD
     Route: 062
     Dates: start: 20140808
  7. NATRILIX [Concomitant]
     Active Substance: INDAPAMIDE
     Indication: HYPERTENSION
     Dosage: 1 DF (1 TABLET), QD
     Route: 048
  8. OSCAL D [Concomitant]
     Active Substance: CALCIUM CARBONATE\CHOLECALCIFEROL
     Indication: OSTEOPOROSIS
     Dosage: 1 DF (1 TABLET), QD
     Route: 048
  9. EPEZ [Concomitant]
     Active Substance: DONEPEZIL HYDROCHLORIDE
     Indication: DEMENTIA ALZHEIMER^S TYPE
     Dosage: UNK
     Route: 048
  10. LEXAPRO [Concomitant]
     Active Substance: ESCITALOPRAM OXALATE
     Indication: DEMENTIA ALZHEIMER^S TYPE
     Dosage: UNK
     Route: 048
  11. ACTONEL [Concomitant]
     Active Substance: RISEDRONATE SODIUM
     Indication: OSTEOPOROSIS
     Dosage: 1 DF (1 TABLET), QMO
     Route: 048
  12. EXELON PATCH [Suspect]
     Active Substance: RIVASTIGMINE
     Dosage: 9.5 MG (18MG/PATCH 10 CM2), QD
     Route: 062
     Dates: start: 20140728, end: 20140808
  13. PURAN [Concomitant]
     Active Substance: LEVOTHYROXINE SODIUM
     Indication: HYPOTHYROIDISM
     Dosage: 1 DF (1 TABLET), QD
     Route: 048
  14. VERAPIL [Concomitant]
     Indication: ARRHYTHMIA
     Dosage: 2 DF (2 TABLETS), QD
     Route: 048

REACTIONS (14)
  - Hyperhidrosis [Recovered/Resolved]
  - Memory impairment [Recovered/Resolved]
  - Abasia [Unknown]
  - Blood pressure increased [Recovered/Resolved]
  - Feeling abnormal [Recovered/Resolved]
  - Hypokinesia [Recovered/Resolved]
  - Dyspnoea [Unknown]
  - Vomiting [Recovered/Resolved]
  - Dizziness [Recovered/Resolved]
  - Spinal fracture [Unknown]
  - Confusional state [Recovered/Resolved]
  - Emotional disorder [Recovered/Resolved]
  - Lip discolouration [Recovered/Resolved]
  - Nausea [Recovered/Resolved]

NARRATIVE: CASE EVENT DATE: 201407
